FAERS Safety Report 5162691-X (Version None)
Quarter: 2006Q4

REPORT INFORMATION
  Report Type: 
  Country: None (occurrence: None)
  Receive Date: 20061201
  Receipt Date: 20060427
  Transmission Date: 20070319
  Serious: No
  Sender: FDA-Public Use
  Company Number: US-GLAXOSMITHKLINE-A0603568A

PATIENT
  Age: 46 Year
  Sex: Female

DRUGS (3)
  1. AUGMENTIN '125' [Suspect]
     Indication: INFECTED SEBACEOUS CYST
     Dosage: 875MG TWICE PER DAY
     Route: 048
     Dates: start: 20060422
  2. SYNTHROID [Concomitant]
  3. ZOLOFT [Concomitant]

REACTIONS (3)
  - HYPERSENSITIVITY [None]
  - PRURITUS [None]
  - URTICARIA [None]
